FAERS Safety Report 12969346 (Version 4)
Quarter: 2017Q1

REPORT INFORMATION
  Report Type: Spontaneous
  Country: US (occurrence: US)
  Receive Date: 20161123
  Receipt Date: 20170315
  Transmission Date: 20170428
  Serious: Yes (Other)
  Sender: FDA-Public Use
  Company Number: US-TEVA-713905USA

PATIENT
  Age: 65 Year
  Sex: Female

DRUGS (3)
  1. DIAZEPAM. [Concomitant]
     Active Substance: DIAZEPAM
  2. COPAXONE [Suspect]
     Active Substance: GLATIRAMER ACETATE
     Indication: MULTIPLE SCLEROSIS
     Route: 058
     Dates: start: 201510, end: 201610
  3. ACYCLOVIR. [Concomitant]
     Active Substance: ACYCLOVIR

REACTIONS (16)
  - Muscular weakness [Unknown]
  - Musculoskeletal discomfort [Unknown]
  - Injection site mass [Unknown]
  - Asthenia [Unknown]
  - Abasia [Unknown]
  - Fatigue [Unknown]
  - Injection site reaction [Not Recovered/Not Resolved]
  - Injection site pain [Unknown]
  - Multiple sclerosis [Not Recovered/Not Resolved]
  - Arthralgia [Unknown]
  - Injection site discolouration [Not Recovered/Not Resolved]
  - Arthropathy [Unknown]
  - Musculoskeletal pain [Unknown]
  - Malaise [Unknown]
  - Multiple sclerosis relapse [Unknown]
  - Therapy change [Unknown]

NARRATIVE: CASE EVENT DATE: 201510
